FAERS Safety Report 4367519-3 (Version None)
Quarter: 2004Q2

REPORT INFORMATION
  Report Type: 
  Country: None (occurrence: None)
  Receive Date: 20040601
  Receipt Date: 20031028
  Transmission Date: 20050107
  Serious: Yes (Hospitalization)
  Sender: FDA-Public Use
  Company Number: AT-ROCHE-350301

PATIENT
  Age: 34 Year
  Sex: Male
  Weight: 93 kg

DRUGS (2)
  1. PEG-INTERFERON ALFA 2A (RO 25-8310) [Suspect]
     Dosage: FORMULATION REPORTED AS INJECTION.
     Route: 058
     Dates: start: 20031014, end: 20031014
  2. RIBAVIRIN [Suspect]
     Route: 048
     Dates: start: 20031014, end: 20031014

REACTIONS (2)
  - CONVULSION [None]
  - SYNCOPE [None]
